FAERS Safety Report 4347461-4 (Version None)
Quarter: 2004Q2

REPORT INFORMATION
  Report Type: 
  Country: None (occurrence: None)
  Receive Date: 20040422
  Receipt Date: 20040406
  Transmission Date: 20050107
  Serious: Yes (Hospitalization)
  Sender: FDA-Public Use
  Company Number: USA030742360

PATIENT
  Age: 72 Year
  Sex: Female
  Weight: 52 kg

DRUGS (4)
  1. FORTEO [Suspect]
     Indication: OSTEOPOROSIS
     Dosage: 20 UG/DAY
     Dates: start: 20030701
  2. QUININE [Concomitant]
  3. MYOFLEX (TROLAMINE SALICYLATE) [Concomitant]
  4. CALCIUM [Concomitant]

REACTIONS (10)
  - BACK PAIN [None]
  - BRONCHITIS [None]
  - CONDITION AGGRAVATED [None]
  - FATIGUE [None]
  - INJECTION SITE ERYTHEMA [None]
  - INJECTION SITE HAEMORRHAGE [None]
  - INJECTION SITE INDURATION [None]
  - KIDNEY INFECTION [None]
  - PAIN IN EXTREMITY [None]
  - PHARMACEUTICAL PRODUCT COMPLAINT [None]
